FAERS Safety Report 19310427 (Version 5)
Quarter: 2021Q3

REPORT INFORMATION
  Report Type: Report from Study
  Country: CN (occurrence: CN)
  Receive Date: 20210526
  Receipt Date: 20210910
  Transmission Date: 20211014
  Serious: Yes (Hospitalization)
  Sender: FDA-Public Use
  Company Number: CN-PFIZER INC-2021576603

PATIENT
  Age: 47 Year
  Sex: Female
  Weight: 66 kg

DRUGS (9)
  1. EPIRUBICIN HCL [Suspect]
     Active Substance: EPIRUBICIN HYDROCHLORIDE
     Indication: TRIPLE NEGATIVE BREAST CANCER
     Dosage: DATE OF MOST RECENT DOSE (160 MG) PRIOR TO SAE ONSET 21APR2021, 13MAY2021 (90MG/M2, 1 IN 2 WK)
     Route: 042
     Dates: start: 20210413
  2. PACLITAXEL. [Suspect]
     Active Substance: PACLITAXEL
     Dosage: 144.8 MG
     Route: 042
     Dates: start: 20210404, end: 20210404
  3. FILGRASTIM [Suspect]
     Active Substance: FILGRASTIM
     Indication: TRIPLE NEGATIVE BREAST CANCER
     Dosage: 6 MG, CYCLIC (ONCE IN TWO WEEKS)
     Route: 058
     Dates: start: 20210423, end: 20210423
  4. ATEZOLIZUMAB. [Suspect]
     Active Substance: ATEZOLIZUMAB
     Indication: TRIPLE NEGATIVE BREAST CANCER
     Dosage: DATE OF MOST RECENT DOSE (840MG) PRIOR TO SAE ONSET: 21APR2021, 13MAY2021 (840MG, 1 IN 2 WK)
     Route: 041
     Dates: start: 20210129
  5. CYCLOPHOSPHAMIDE. [Suspect]
     Active Substance: CYCLOPHOSPHAMIDE
     Indication: TRIPLE NEGATIVE BREAST CANCER
     Dosage: DATE OF MOST RECENT DOSE (1074MG) PRIOR TO SAE ONSET 21APR2021, 13MAY2021 (600MG/M2, 1 IN 2 WK)
     Route: 042
     Dates: start: 20210421
  6. EPIRUBICIN HCL [Suspect]
     Active Substance: EPIRUBICIN HYDROCHLORIDE
     Dosage: 160 MG
     Route: 042
     Dates: start: 20210421, end: 20210421
  7. PACLITAXEL. [Suspect]
     Active Substance: PACLITAXEL
     Indication: TRIPLE NEGATIVE BREAST CANCER
     Dosage: DATE OF MOST RECENT DOSE (144.8 MG) PRIOR TO SAE ONSET 04APR2021, 14APR2021 (80MG/M2, 1 IN 1 WK)
     Route: 042
     Dates: start: 20210129
  8. ATEZOLIZUMAB. [Suspect]
     Active Substance: ATEZOLIZUMAB
     Dosage: 840 MG
     Route: 041
     Dates: start: 20210421, end: 20210421
  9. CYCLOPHOSPHAMIDE. [Suspect]
     Active Substance: CYCLOPHOSPHAMIDE
     Dosage: 1074 MG
     Route: 042
     Dates: start: 20210421, end: 20210421

REACTIONS (2)
  - Headache [Recovered/Resolved]
  - Vomiting [Recovered/Resolved]

NARRATIVE: CASE EVENT DATE: 20210430
